FAERS Safety Report 10415420 (Version 5)
Quarter: 2015Q2

REPORT INFORMATION
  Report Type: Spontaneous
  Country: JP (occurrence: JP)
  Receive Date: 20140828
  Receipt Date: 20150522
  Transmission Date: 20150821
  Serious: Yes (Hospitalization, Other)
  Sender: FDA-Public Use
  Company Number: JP-ASTRAZENECA-2014SE53576

PATIENT
  Age: 64 Year
  Sex: Female
  Weight: 56 kg

DRUGS (7)
  1. PROPOFOL. [Suspect]
     Active Substance: PROPOFOL
     Indication: MAINTENANCE OF ANAESTHESIA
     Dosage: 2 TO 3 MCG/ML
     Route: 042
     Dates: start: 20140605, end: 20140605
  2. EPHEDRIN [Suspect]
     Active Substance: EPHEDRINE HYDROCHLORIDE
     Indication: HYPOTENSION
     Route: 042
     Dates: start: 20140605, end: 20140605
  3. ANAPEINE [Suspect]
     Active Substance: ROPIVACAINE HYDROCHLORIDE
     Indication: NERVE BLOCK
     Route: 053
     Dates: start: 20140605, end: 20140605
  4. FENTANYL. [Suspect]
     Active Substance: FENTANYL
     Indication: ANALGESIC THERAPY
     Dosage: 1 TO 2 ML/TIME, FIVE TIMES DAILY
     Route: 042
     Dates: start: 20140605, end: 20140605
  5. REMIFENTANIL HYDROCHLORIDE [Suspect]
     Active Substance: REMIFENTANIL HYDROCHLORIDE
     Indication: MAINTENANCE OF ANAESTHESIA
     Dosage: 0.1 TO 0.2 MG/KG/MIN
     Route: 042
     Dates: start: 20140605, end: 20140605
  6. NEO-SYNESIN [Suspect]
     Active Substance: PHENYLEPHRINE HYDROCHLORIDE
     Indication: HYPOTENSION
     Route: 042
     Dates: start: 20140605, end: 20140605
  7. SEISHOKU [Suspect]
     Active Substance: SODIUM CHLORIDE
     Indication: NERVE BLOCK
     Dosage: DOSE UNKNOWN
     Route: 053
     Dates: start: 20140605, end: 20140605

REACTIONS (3)
  - Hypoaesthesia [Recovered/Resolved]
  - Peripheral nerve palsy [Unknown]
  - Movement disorder [Recovered/Resolved]

NARRATIVE: CASE EVENT DATE: 201406
